FAERS Safety Report 9845011 (Version 1)
Quarter: 2014Q1

REPORT INFORMATION
  Report Type: Report from Study
  Country: GR (occurrence: GR)
  Receive Date: 20140127
  Receipt Date: 20140127
  Transmission Date: 20141002
  Serious: Yes (Death, Life-Threatening, Hospitalization)
  Sender: FDA-Public Use
  Company Number: GR-ELI_LILLY_AND_COMPANY-GR201401007963

PATIENT
  Age: 62 Year
  Sex: Male
  Weight: 78 kg

DRUGS (5)
  1. GEMCITABINE HYDROCHLORIDE [Suspect]
     Indication: PANCREATIC CARCINOMA METASTATIC
     Dosage: 2000 MG, CYCLICAL
     Route: 042
     Dates: start: 20130801, end: 20130905
  2. TEMSIROLIMUS [Suspect]
     Indication: PANCREATIC CARCINOMA METASTATIC
     Dosage: 25 MG, WEEKLY (1/W)
     Route: 042
     Dates: start: 20130801, end: 20130828
  3. NORVASC [Concomitant]
     Dosage: UNK
     Dates: end: 20130920
  4. SOTALOL [Concomitant]
     Indication: HYPERTENSION
     Dosage: 40 MG, BID
     Route: 048
     Dates: end: 20131003
  5. SALOSPIR [Concomitant]
     Indication: HYPERTENSION
     Dosage: UNK
     Dates: end: 20131003

REACTIONS (2)
  - Opportunistic infection [Fatal]
  - Muscle haemorrhage [Fatal]
